FAERS Safety Report 21779964 (Version 1)
Quarter: 2022Q4

REPORT INFORMATION
  Report Type: Spontaneous
  Country: IN (occurrence: IN)
  Receive Date: 20221226
  Receipt Date: 20221226
  Transmission Date: 20230112
  Serious: Yes (Hospitalization, Other)
  Sender: FDA-Public Use
  Company Number: IN-MLMSERVICE-20221214-3969005-1

PATIENT
  Age: 31 Year
  Sex: Male

DRUGS (4)
  1. DEXAMETHASONE [Suspect]
     Active Substance: DEXAMETHASONE
     Indication: COVID-19 pneumonia
     Route: 048
  2. TOCILIZUMAB [Suspect]
     Active Substance: TOCILIZUMAB
     Indication: COVID-19 pneumonia
     Dosage: 5.3 MG/KG
     Route: 042
  3. REMDESIVIR [Concomitant]
     Active Substance: REMDESIVIR
     Indication: COVID-19 pneumonia
     Dosage: LOADING DOSE
  4. REMDESIVIR [Concomitant]
     Active Substance: REMDESIVIR

REACTIONS (8)
  - Haematuria [Recovering/Resolving]
  - Renal pseudoaneurysm [Recovering/Resolving]
  - Renal infarct [Recovering/Resolving]
  - Mucormycosis [Recovering/Resolving]
  - Abscess limb [Recovering/Resolving]
  - Renal artery occlusion [Recovering/Resolving]
  - Renal failure [Recovering/Resolving]
  - Product use in unapproved indication [Unknown]
